FAERS Safety Report 6437028-6 (Version None)
Quarter: 2009Q4

REPORT INFORMATION
  Report Type: 
  Country: None (occurrence: None)
  Receive Date: 20091112
  Receipt Date: 20091104
  Transmission Date: 20100525
  Serious: Yes (Hospitalization, Other)
  Sender: FDA-Public Use
  Company Number: CH-JNJFOC-20090703975

PATIENT
  Age: 29 Year
  Sex: Female

DRUGS (2)
  1. CAELYX [Suspect]
     Dosage: CYCLE 2
     Route: 042
  2. CAELYX [Suspect]
     Indication: NEOPLASM MALIGNANT
     Dosage: 1-2 HOUR INTRAVENOUS INFUSION. CYCLE 1
     Route: 042

REACTIONS (3)
  - DERMATITIS [None]
  - OVERDOSE [None]
  - STOMATITIS [None]
